FAERS Safety Report 13609099 (Version 1)
Quarter: 2017Q2

REPORT INFORMATION
  Report Type: Spontaneous
  Country: IT (occurrence: IT)
  Receive Date: 20170602
  Receipt Date: 20170602
  Transmission Date: 20170830
  Serious: Yes (Death, Other)
  Sender: FDA-Public Use
  Company Number: IT-APOPHARMA USA, INC.-2017AP012391

PATIENT
  Age: 44 Year
  Sex: Male

DRUGS (2)
  1. ALKERAN [Suspect]
     Active Substance: MELPHALAN
     Indication: LIGHT CHAIN DISEASE
     Dosage: UNK, UNKNOWN
     Route: 065
     Dates: start: 201407
  2. DEXAMETHASONE. [Concomitant]
     Active Substance: DEXAMETHASONE
     Indication: LIGHT CHAIN DISEASE
     Dosage: UNK, UNKNOWN
     Route: 065
     Dates: start: 201407

REACTIONS (1)
  - Cytomegalovirus infection [Fatal]
